FAERS Safety Report 25766856 (Version 1)
Quarter: 2025Q3

REPORT INFORMATION
  Report Type: Spontaneous
  Country: US (occurrence: None)
  Receive Date: 20250904
  Receipt Date: 20250904
  Transmission Date: 20251021
  Serious: No
  Sender: FDA-CTU
  Company Number: None

PATIENT
  Age: 43 Year
  Sex: Female

DRUGS (8)
  1. AMBRISENTAN [Suspect]
     Active Substance: AMBRISENTAN
     Indication: Pulmonary hypertension
  2. AMBRISENTAN [Suspect]
     Active Substance: AMBRISENTAN
     Indication: Hereditary haemorrhagic telangiectasia
  3. TADALAFIL [Suspect]
     Active Substance: TADALAFIL
  4. DIGOXIN [Concomitant]
     Active Substance: DIGOXIN
  5. AMLODIPINE BESYLATE [Concomitant]
     Active Substance: AMLODIPINE BESYLATE
  6. FUROSEMIDE [Concomitant]
     Active Substance: FUROSEMIDE
  7. FERROUS FUMARATE [Concomitant]
     Active Substance: FERROUS FUMARATE
  8. AMITRIPTYLINE HYDROCHLORIDE [Concomitant]
     Active Substance: AMITRIPTYLINE HYDROCHLORIDE

REACTIONS (1)
  - Adverse event [None]

NARRATIVE: CASE EVENT DATE: 20250903
